FAERS Safety Report 12263594 (Version 1)
Quarter: 2016Q2

REPORT INFORMATION
  Report Type: Spontaneous
  Country: CN (occurrence: CN)
  Receive Date: 20160413
  Receipt Date: 20160413
  Transmission Date: 20160815
  Serious: Yes (Hospitalization)
  Sender: FDA-Public Use
  Company Number: CN-PFIZER INC-2016204452

PATIENT
  Age: 52 Year
  Sex: Female
  Weight: 50 kg

DRUGS (2)
  1. VITAMIN A [Concomitant]
     Active Substance: VITAMIN A
     Indication: ECZEMA
     Dosage: UNK
     Dates: start: 201508, end: 20151027
  2. DIFLUCAN [Suspect]
     Active Substance: FLUCONAZOLE
     Indication: ECZEMA
     Dosage: 1 DF, 2X/DAY
     Route: 048
     Dates: start: 20151010, end: 20151027

REACTIONS (2)
  - Anaemia [Recovering/Resolving]
  - Hepatocellular injury [Recovering/Resolving]

NARRATIVE: CASE EVENT DATE: 20151027
